FAERS Safety Report 24706876 (Version 1)
Quarter: 2024Q4

REPORT INFORMATION
  Report Type: Spontaneous
  Country: IL (occurrence: IL)
  Receive Date: 20241206
  Receipt Date: 20241206
  Transmission Date: 20250115
  Serious: Yes (Hospitalization, Other)
  Sender: TEVA
  Company Number: IL-TEVA-VS-3271452

PATIENT
  Age: 50 Year
  Sex: Female

DRUGS (8)
  1. CARBOPLATIN [Suspect]
     Active Substance: CARBOPLATIN
     Indication: Metastases to lung
     Route: 065
     Dates: start: 20230517
  2. CARBOPLATIN [Suspect]
     Active Substance: CARBOPLATIN
     Indication: Metastases to lung
     Route: 065
     Dates: start: 20221106
  3. CARBOPLATIN [Suspect]
     Active Substance: CARBOPLATIN
     Indication: Metastases to lung
     Dosage: FOURTH TREATMENT
     Route: 065
     Dates: start: 20230626
  4. CARBOPLATIN [Suspect]
     Active Substance: CARBOPLATIN
     Indication: Metastases to lung
     Route: 065
     Dates: start: 20221212
  5. TAXOL [Suspect]
     Active Substance: PACLITAXEL
     Indication: Metastases to lung
     Route: 065
     Dates: start: 20230515
  6. TAXOL [Suspect]
     Active Substance: PACLITAXEL
     Indication: Metastases to lung
     Route: 065
     Dates: start: 20230712
  7. TAXOL [Suspect]
     Active Substance: PACLITAXEL
     Indication: Metastases to lung
     Route: 065
     Dates: start: 20230716
  8. TAXOL [Suspect]
     Active Substance: PACLITAXEL
     Indication: Metastases to lung
     Route: 065
     Dates: start: 20221106

REACTIONS (49)
  - Arthralgia [Unknown]
  - Pain in extremity [Recovering/Resolving]
  - Neuropathy peripheral [Not Recovered/Not Resolved]
  - Hepatitis [Unknown]
  - Infusion related reaction [Unknown]
  - Brain oedema [Recovering/Resolving]
  - Decreased appetite [Unknown]
  - Non-small cell lung cancer metastatic [Unknown]
  - Lacrimation increased [Unknown]
  - Carbohydrate antigen 19-9 increased [Unknown]
  - Peripheral swelling [Unknown]
  - Dyspnoea exertional [Unknown]
  - Cough [Unknown]
  - Chest pain [Unknown]
  - Chest discomfort [Unknown]
  - Fatigue [Unknown]
  - Drug hypersensitivity [Unknown]
  - COVID-19 [Unknown]
  - Musculoskeletal pain [Unknown]
  - Back pain [Not Recovered/Not Resolved]
  - Haemoglobin decreased [Unknown]
  - Eyelid ptosis [Unknown]
  - Headache [Unknown]
  - Nausea [Recovering/Resolving]
  - Paraesthesia [Recovering/Resolving]
  - Swelling face [Recovered/Resolved]
  - Limb mass [Recovered/Resolved]
  - Erythema [Unknown]
  - Pruritus [Unknown]
  - Tremor [Unknown]
  - Muscular weakness [Unknown]
  - Peripheral coldness [Unknown]
  - Limb discomfort [Unknown]
  - Body temperature increased [Unknown]
  - Hypoaesthesia [Unknown]
  - Myalgia [Unknown]
  - Rhinorrhoea [Unknown]
  - Arthralgia [Unknown]
  - Gait disturbance [Unknown]
  - Retroperitoneal lymphadenopathy [Unknown]
  - PD-L1 protein expression [Unknown]
  - Metastases to kidney [Unknown]
  - Metastases to adrenals [Unknown]
  - Palpitations [Unknown]
  - Back pain [Unknown]
  - Asthenia [Recovering/Resolving]
  - Discomfort [Unknown]
  - Dry eye [Unknown]
  - Motor dysfunction [Unknown]

NARRATIVE: CASE EVENT DATE: 20211001
